FAERS Safety Report 21195397 (Version 1)
Quarter: 2022Q3

REPORT INFORMATION
  Report Type: Spontaneous
  Country: CA (occurrence: CA)
  Receive Date: 20220810
  Receipt Date: 20220810
  Transmission Date: 20221027
  Serious: Yes (Other)
  Sender: FDA-Public Use
  Company Number: CA-AMGEN-CANSP2022133732

PATIENT

DRUGS (3)
  1. INFLIXIMAB [Suspect]
     Active Substance: INFLIXIMAB
     Indication: Crohn^s disease
     Route: 065
  2. AZATHIOPRINE [Concomitant]
     Active Substance: AZATHIOPRINE
  3. METHOTREXATE [Concomitant]
     Active Substance: METHOTREXATE

REACTIONS (6)
  - Crohn^s disease [Unknown]
  - Autoimmune hepatitis [Unknown]
  - Drug specific antibody present [Unknown]
  - Treatment failure [Unknown]
  - Off label use [Unknown]
  - Psoriasis [Unknown]
